FAERS Safety Report 19258142 (Version 1)
Quarter: 2021Q2

REPORT INFORMATION
  Report Type: Report from Study
  Country: IN (occurrence: IN)
  Receive Date: 20210514
  Receipt Date: 20210514
  Transmission Date: 20210717
  Serious: Yes (Other)
  Sender: FDA-Public Use
  Company Number: NVSC2021IN102060

PATIENT
  Age: 48 Year
  Sex: Female

DRUGS (2)
  1. MEQSEL [Suspect]
     Active Substance: TRAMETINIB
     Indication: LUNG NEOPLASM MALIGNANT
     Dosage: 2 MG, QD (TABLET)
     Route: 065
     Dates: start: 20200930, end: 20210319
  2. RAFINLAR [Suspect]
     Active Substance: DABRAFENIB
     Indication: LUNG NEOPLASM MALIGNANT
     Dosage: 150 MG, BID  (TABLET)
     Route: 065
     Dates: start: 20200930, end: 20210319

REACTIONS (2)
  - Pyrexia [Unknown]
  - Hepatic infection [Unknown]

NARRATIVE: CASE EVENT DATE: 20210319
